FAERS Safety Report 8523074 (Version 2)
Quarter: 2013Q2

REPORT INFORMATION
  Report Type: Spontaneous
  Country: JP (occurrence: JP)
  Receive Date: 20120420
  Receipt Date: 20130506
  Transmission Date: 20140414
  Serious: Yes (Other)
  Sender: FDA-Public Use
  Company Number: JP-JNJFOC-20120407292

PATIENT
  Age: 47 Year
  Sex: Female

DRUGS (3)
  1. REMICADE [Suspect]
     Indication: COLITIS ULCERATIVE
     Route: 042
  2. PREDNISOLONE [Suspect]
     Indication: COLITIS ULCERATIVE
     Route: 065
  3. GANCICLOVIR [Concomitant]
     Indication: CYTOMEGALOVIRUS ENTEROCOLITIS
     Route: 042

REACTIONS (1)
  - Large intestine perforation [Unknown]
